FAERS Safety Report 6828646-1 (Version None)
Quarter: 2010Q3

REPORT INFORMATION
  Report Type: 
  Country: None (occurrence: None)
  Receive Date: 20100709
  Receipt Date: 20070216
  Transmission Date: 20110219
  Serious: No
  Sender: FDA-Public Use
  Company Number: US-PFIZER INC-2007013365

PATIENT
  Sex: Male
  Weight: 99.79 kg

DRUGS (2)
  1. CHANTIX [Suspect]
     Indication: SMOKING CESSATION THERAPY
     Dates: start: 20070101
  2. ONE-A-DAY [Interacting]
     Indication: VITAMIN SUPPLEMENTATION

REACTIONS (4)
  - DRUG INTERACTION [None]
  - HYPERPHAGIA [None]
  - LIBIDO DECREASED [None]
  - NAUSEA [None]
